FAERS Safety Report 8145042-8 (Version None)
Quarter: 2012Q1

REPORT INFORMATION
  Report Type: 
  Country: None (occurrence: None)
  Receive Date: 20120217
  Receipt Date: 20120209
  Transmission Date: 20120608
  Serious: Yes (Other)
  Sender: FDA-Public Use
  Company Number: PHHY2012BR011969

PATIENT
  Age: 76 Year
  Sex: Male

DRUGS (5)
  1. ASPIRIN [Suspect]
     Indication: HYPERTENSION
     Dosage: UNK UKN, UNK
  2. AMLODIPINE [Suspect]
     Indication: HYPERTENSION
     Dosage: 5 MG, UNK
  3. ATORVASTATIN [Suspect]
     Indication: HYPERTENSION
     Dosage: UNK UKN, UNK
  4. METOPROLOL SUCCINATE [Suspect]
     Indication: HYPERTENSION
     Dosage: UNK UKN, UNK
  5. DIOVAN [Suspect]
     Indication: HYPERTENSION
     Dosage: 320 MG, DAILY

REACTIONS (1)
  - RENAL CANCER [None]
